FAERS Safety Report 8349547-6 (Version None)
Quarter: 2012Q2

REPORT INFORMATION
  Report Type: 
  Country: None (occurrence: None)
  Receive Date: 20120510
  Receipt Date: 20120501
  Transmission Date: 20120825
  Serious: Yes (Other)
  Sender: FDA-Public Use
  Company Number: US-ASTRAZENECA-2012SE28360

PATIENT
  Age: 47 Year
  Sex: Male

DRUGS (3)
  1. CYMBREX [Concomitant]
  2. PRILOSEC [Suspect]
     Route: 048
  3. NEXIUM [Suspect]
     Route: 048
     Dates: start: 19920101

REACTIONS (4)
  - MIGRAINE [None]
  - HYPERTENSION [None]
  - POST-TRAUMATIC STRESS DISORDER [None]
  - CEREBROVASCULAR ACCIDENT [None]
